FAERS Safety Report 9517042 (Version 1)
Quarter: 2013Q3

REPORT INFORMATION
  Report Type: Spontaneous
  Country: US (occurrence: US)
  Receive Date: 20130911
  Receipt Date: 20130911
  Transmission Date: 20140515
  Serious: No
  Sender: FDA-Public Use
  Company Number: US-PFIZER INC-2013258594

PATIENT
  Age: 67 Year
  Sex: Female
  Weight: 61.22 kg

DRUGS (4)
  1. GABAPENTIN [Suspect]
     Indication: NEUROPATHY PERIPHERAL
     Dosage: UNK
  2. LAMOTRIGINE [Suspect]
     Dosage: 25 MG, UNK
  3. EXEMESTANE [Suspect]
     Dosage: UNK
  4. CODEINE [Suspect]
     Dosage: UNK

REACTIONS (4)
  - Coordination abnormal [Unknown]
  - Burning sensation [Unknown]
  - Feeling drunk [Unknown]
  - Gait disturbance [Unknown]
